FAERS Safety Report 6166605-5 (Version None)
Quarter: 2009Q2

REPORT INFORMATION
  Report Type: 
  Country: None (occurrence: None)
  Receive Date: 20090424
  Receipt Date: 20080710
  Transmission Date: 20091009
  Serious: No
  Sender: FDA-Public Use
  Company Number: US-ASTRAZENECA-2008UW13815

PATIENT
  Age: 57 Year
  Sex: Male
  Weight: 88.5 kg

DRUGS (4)
  1. ZOMIG [Suspect]
     Indication: MIGRAINE
     Dates: start: 20070101
  2. M.V.I. [Concomitant]
  3. MILK THISTLE [Concomitant]
  4. GLUCOSAMINE/CHONDROITIN [Concomitant]

REACTIONS (4)
  - DYSGEUSIA [None]
  - HUNGER [None]
  - ILL-DEFINED DISORDER [None]
  - SOMNOLENCE [None]
